FAERS Safety Report 7546629-3 (Version None)
Quarter: 2011Q2

REPORT INFORMATION
  Report Type: 
  Country: None (occurrence: None)
  Receive Date: 20110524
  Receipt Date: 20110301
  Transmission Date: 20111010
  Serious: No
  Sender: FDA-Public Use
  Company Number: 028477

PATIENT
  Sex: Female
  Weight: 65.8 kg

DRUGS (12)
  1. ALLEGRA [Concomitant]
  2. CALCIUM CARBONATE [Concomitant]
  3. VITAMIN C /00008001/ [Concomitant]
  4. M.V.I. [Concomitant]
  5. ACIDOPHILUS [Concomitant]
  6. CIMZIA [Suspect]
     Indication: CROHN'S DISEASE
     Dosage: (SUBCUTANEOUS) ; (400 MG 1X/4 WEEKS SUBCUTANEOUS)
     Route: 058
     Dates: start: 20080801
  7. CIMZIA [Suspect]
     Indication: CROHN'S DISEASE
     Dosage: (SUBCUTANEOUS) ; (400 MG 1X/4 WEEKS SUBCUTANEOUS)
     Route: 058
     Dates: start: 20081001
  8. FISH OIL [Concomitant]
  9. LEVAQUIN [Concomitant]
  10. ASACOL [Concomitant]
  11. ZOLPIDEM [Concomitant]
  12. VITAMIN D [Concomitant]

REACTIONS (1)
  - FISTULA [None]
